FAERS Safety Report 7406569-7 (Version None)
Quarter: 2011Q2

REPORT INFORMATION
  Report Type: 
  Country: None (occurrence: None)
  Receive Date: 20110411
  Receipt Date: 20110405
  Transmission Date: 20111010
  Serious: Yes (Other)
  Sender: FDA-Public Use
  Company Number: US-PFIZER INC-2010125730

PATIENT
  Sex: Female
  Weight: 62 kg

DRUGS (2)
  1. LIPITOR [Suspect]
     Indication: HYPERLIPIDAEMIA
     Dosage: 40 MG, DAILY
     Route: 048
  2. METOPROLOL SUCCINATE [Concomitant]
     Indication: EXTRASYSTOLES
     Dosage: UNK, 2X/DAY

REACTIONS (1)
  - DEMENTIA ALZHEIMER'S TYPE [None]
